FAERS Safety Report 7000184-5 (Version None)
Quarter: 2010Q3

REPORT INFORMATION
  Report Type: 
  Country: None (occurrence: None)
  Receive Date: 20100920
  Receipt Date: 20091204
  Transmission Date: 20110219
  Serious: No
  Sender: FDA-Public Use
  Company Number: US-ASTRAZENECA-2009SE30391

PATIENT
  Age: 46 Year
  Sex: Female
  Weight: 122.5 kg

DRUGS (6)
  1. SEROQUEL XR [Suspect]
     Dosage: DAILY
     Route: 048
  2. LAMICTAL [Concomitant]
  3. CYMBALTA [Concomitant]
  4. HYDROCHLOROTHIAZIDE [Concomitant]
  5. METFORMIN [Concomitant]
  6. BYSTOLIC [Concomitant]

REACTIONS (1)
  - DRUG SCREEN POSITIVE [None]
